FAERS Safety Report 14517075 (Version 1)
Quarter: 2018Q1

REPORT INFORMATION
  Report Type: Spontaneous
  Country: PE (occurrence: PE)
  Receive Date: 20180212
  Receipt Date: 20180212
  Transmission Date: 20180509
  Serious: Yes (Other)
  Sender: FDA-Public Use
  Company Number: PE-MERCK KGAA-2041758

PATIENT
  Sex: Female

DRUGS (1)
  1. NOVOTHYROX [Suspect]
     Active Substance: LEVOTHYROXINE SODIUM
     Indication: PRODUCT USED FOR UNKNOWN INDICATION

REACTIONS (8)
  - Swelling [None]
  - Spinal disorder [None]
  - Weight loss poor [None]
  - Asthenia [None]
  - Abdominal distension [None]
  - Hyperthyroidism [None]
  - Fatigue [None]
  - Arthralgia [None]
